FAERS Safety Report 8613825-3 (Version None)
Quarter: 2012Q3

REPORT INFORMATION
  Report Type: 
  Country: None (occurrence: None)
  Receive Date: 20120823
  Receipt Date: 20120814
  Transmission Date: 20120928
  Serious: No
  Sender: FDA-Public Use
  Company Number: US-BIOGENIDEC-2012BI032400

PATIENT
  Age: 74 Year
  Sex: Male

DRUGS (6)
  1. AVONEX [Suspect]
     Route: 030
     Dates: start: 20120707, end: 20120707
  2. AVONEX [Suspect]
     Route: 030
     Dates: start: 20120721, end: 20120721
  3. AVONEX [Suspect]
     Route: 030
     Dates: start: 20120804
  4. AVONEX [Suspect]
     Route: 030
     Dates: start: 20120714, end: 20120714
  5. AVONEX [Suspect]
     Indication: MULTIPLE SCLEROSIS
     Route: 030
     Dates: start: 20120630, end: 20120630
  6. IMMUNE GLOBULIN INTRAVENOUS (HUMAN) [Concomitant]
     Indication: GAIT DISTURBANCE

REACTIONS (2)
  - ABASIA [None]
  - INFLUENZA LIKE ILLNESS [None]
